FAERS Safety Report 7734058-9 (Version None)
Quarter: 2011Q3

REPORT INFORMATION
  Report Type: 
  Country: None (occurrence: None)
  Receive Date: 20110906
  Receipt Date: 20110906
  Transmission Date: 20111222
  Serious: Yes (Life-Threatening, Hospitalization, Disabling)
  Sender: FDA-Public Use
  Company Number: None

PATIENT
  Age: 62 Year
  Sex: Male
  Weight: 88.8 kg

DRUGS (1)
  1. BACLOFEN [Suspect]
     Indication: PAIN
     Dosage: MG PO
     Route: 048
     Dates: start: 20110718, end: 20110824

REACTIONS (7)
  - URINARY TRACT OBSTRUCTION [None]
  - METABOLIC ACIDOSIS [None]
  - RENAL FAILURE ACUTE [None]
  - CONFUSIONAL STATE [None]
  - URINARY RETENTION [None]
  - MENTAL STATUS CHANGES [None]
  - DIALYSIS [None]
